FAERS Safety Report 5396864-8 (Version None)
Quarter: 2007Q3

REPORT INFORMATION
  Report Type: 
  Country: None (occurrence: None)
  Receive Date: 20070723
  Receipt Date: 20070716
  Transmission Date: 20080115
  Serious: Yes (Other)
  Sender: FDA-Public Use
  Company Number: US-GDP-0715077

PATIENT
  Age: 59 Year
  Sex: Female
  Weight: 72.5755 kg

DRUGS (10)
  1. METROGEL [Suspect]
     Indication: ROSACEA
     Dosage: 1 APP BID TP
     Route: 061
     Dates: start: 20070603, end: 20070624
  2. METROGEL [Suspect]
     Indication: ROSACEA
     Dosage: 1 APP BID TP
     Route: 061
     Dates: start: 20041001
  3. FOSAMAX [Concomitant]
  4. AVANDIA [Concomitant]
  5. LISINOPRIL [Concomitant]
  6. VERAPAMIL [Concomitant]
  7. SIMVASTATIN [Concomitant]
  8. CETAPHIL [Concomitant]
  9. ASPIRIN [Concomitant]
  10. CALCIUM WITH VITAMIN D [Concomitant]

REACTIONS (7)
  - CARPAL TUNNEL SYNDROME [None]
  - FEELING COLD [None]
  - FEELING HOT [None]
  - HYPOAESTHESIA [None]
  - HYPOAESTHESIA ORAL [None]
  - PARAESTHESIA [None]
  - TEMPERATURE INTOLERANCE [None]
